FAERS Safety Report 15955255 (Version 1)
Quarter: 2019Q1

REPORT INFORMATION
  Report Type: Spontaneous
  Country: GR (occurrence: GR)
  Receive Date: 20190213
  Receipt Date: 20190213
  Transmission Date: 20190417
  Serious: Yes (Death)
  Sender: FDA-Public Use
  Company Number: GR-TEVA-2019-GR-1008471

PATIENT
  Age: 71 Year
  Sex: Male
  Weight: 80 kg

DRUGS (1)
  1. CARBOSIN 150MG, 10MG/ML [Suspect]
     Active Substance: CARBOPLATIN
     Indication: LUNG NEOPLASM MALIGNANT
     Route: 042
     Dates: start: 20110729, end: 20110729

REACTIONS (5)
  - Urinary incontinence [Fatal]
  - Blood pressure decreased [Fatal]
  - Hypersensitivity [Fatal]
  - Loss of consciousness [Fatal]
  - Seizure [Fatal]

NARRATIVE: CASE EVENT DATE: 20110729
